FAERS Safety Report 7734951-7 (Version None)
Quarter: 2011Q3

REPORT INFORMATION
  Report Type: 
  Country: None (occurrence: None)
  Receive Date: 20110907
  Receipt Date: 20110830
  Transmission Date: 20111222
  Serious: Yes (Other)
  Sender: FDA-Public Use
  Company Number: PHHY2011BR77979

PATIENT

DRUGS (1)
  1. VOLTAREN [Suspect]
     Indication: BONE PAIN
     Dosage: 75 MG (WITH HYDRATION SOLUTION)
     Route: 042

REACTIONS (4)
  - DIZZINESS [None]
  - MALAISE [None]
  - TONGUE DISORDER [None]
  - TREMOR [None]
